FAERS Safety Report 25801446 (Version 1)
Quarter: 2025Q3

REPORT INFORMATION
  Report Type: Spontaneous
  Country: US (occurrence: US)
  Receive Date: 20250915
  Receipt Date: 20250915
  Transmission Date: 20251021
  Serious: Yes (Other)
  Sender: ASTELLAS
  Company Number: US-ASTELLAS-2025-AER-047069

PATIENT
  Age: 67 Year
  Sex: Female

DRUGS (14)
  1. VYLOY [Suspect]
     Active Substance: ZOLBETUXIMAB-CLZB
     Indication: Gastric cancer
     Dosage: 600 MG/M2 ONCE EVERY 3 WEEKS (21 DAYS)?FOR INJECTION
     Route: 042
     Dates: start: 20250203, end: 20250203
  2. VYLOY [Suspect]
     Active Substance: ZOLBETUXIMAB-CLZB
     Dosage: 600 MG/M2 ONCE EVERY 3 WEEKS (21 DAYS)?FOR INJECTION
     Route: 042
     Dates: start: 20250825
  3. ELIQUIS [Concomitant]
     Active Substance: APIXABAN
     Indication: Product used for unknown indication
     Dosage: ONGOING
     Route: 048
     Dates: start: 20250711
  4. LOMOTIL [Concomitant]
     Active Substance: ATROPINE SULFATE\DIPHENOXYLATE HYDROCHLORIDE
     Indication: Diarrhoea
     Dosage: DIPHENOXYLATE-ATROPINE (LOMOTIL) 2.5- 0.025 MG ORAL TABLET^ TAKE 1 TABLET BY MOUTH FOUR TIMES A DAY
     Route: 048
     Dates: start: 20250519
  5. PEPCID [Concomitant]
     Active Substance: FAMOTIDINE
     Indication: Product used for unknown indication
     Route: 048
     Dates: start: 20250723
  6. MELATONIN [Concomitant]
     Active Substance: MELATONIN
     Indication: Product used for unknown indication
     Dosage: TAKE 1 TABLET BY MOUTH DAILY AT 8 PM
     Route: 048
     Dates: start: 20250225
  7. ZYPREXA [Concomitant]
     Active Substance: OLANZAPINE
     Indication: Product used for unknown indication
     Dosage: AT BEDTIME; ONGOING
     Route: 048
     Dates: start: 20250228
  8. ZYPREXA [Concomitant]
     Active Substance: OLANZAPINE
     Dosage: AT BEDTIME
     Route: 048
     Dates: start: 20250127
  9. ZOFRAN [Concomitant]
     Active Substance: ONDANSETRON HYDROCHLORIDE
     Indication: Nausea
     Dosage: RAPID DISSOLVE; TAKE 1 TABLET BY MOUTH THREE TIMES A DAY AS NEEDED FOR NAUSEA OR VOMITING. MAY START
     Route: 048
     Dates: start: 20250124
  10. ZOFRAN [Concomitant]
     Active Substance: ONDANSETRON HYDROCHLORIDE
     Indication: Vomiting
  11. COMPAZINE [Concomitant]
     Active Substance: PROCHLORPERAZINE MALEATE
     Indication: Nausea
     Dosage: TAKE 1 TABLET BY MOUTH EVERY 6 HOURS AS NEEDED FOR NAUSEA OR VOMITING
     Route: 048
     Dates: start: 20250124
  12. COMPAZINE [Concomitant]
     Active Substance: PROCHLORPERAZINE MALEATE
     Indication: Vomiting
  13. LIALDA [Concomitant]
     Active Substance: MESALAMINE
     Indication: Product used for unknown indication
     Dosage: ONGOING
     Route: 048
     Dates: start: 20250513
  14. RESTASIS [Concomitant]
     Active Substance: CYCLOSPORINE
     Indication: Product used for unknown indication
     Dosage: OPTHALMIC DROPPERETTE; BOTH EYES; DAW
     Route: 047
     Dates: start: 20241230

REACTIONS (1)
  - Neuropathy peripheral [Unknown]

NARRATIVE: CASE EVENT DATE: 20250825
